FAERS Safety Report 16541541 (Version 1)
Quarter: 2019Q3

REPORT INFORMATION
  Report Type: Report from Study
  Country: ES (occurrence: ES)
  Receive Date: 20190708
  Receipt Date: 20190708
  Transmission Date: 20191004
  Serious: Yes (Life-Threatening)
  Sender: FDA-Public Use
  Company Number: ES-TEVA-2019-ES-1073530

PATIENT
  Age: 41 Year
  Sex: Female

DRUGS (5)
  1. IBUPROFENO [Interacting]
     Active Substance: IBUPROFEN
     Indication: HEADACHE
     Route: 048
     Dates: start: 20170417, end: 20170425
  2. METAMIZOL (NOLOTIL) [Interacting]
     Active Substance: METAMIZOLE
     Indication: HEADACHE
     Route: 048
     Dates: start: 20170417, end: 20170425
  3. NAPROXENO [Suspect]
     Active Substance: NAPROXEN
     Indication: HEADACHE
     Route: 048
     Dates: start: 20170417, end: 20170425
  4. PARACETAMOL [Interacting]
     Active Substance: ACETAMINOPHEN
     Indication: HEADACHE
     Route: 048
     Dates: start: 20170417, end: 20170425
  5. DIAZEPAM. [Interacting]
     Active Substance: DIAZEPAM
     Indication: NECK PAIN
     Route: 048
     Dates: start: 20170423, end: 20170425

REACTIONS (5)
  - Acute hepatic failure [Recovered/Resolved]
  - Drug reaction with eosinophilia and systemic symptoms [Recovered/Resolved]
  - Toxic skin eruption [Recovered/Resolved]
  - Drug interaction [Unknown]
  - Acute kidney injury [Recovered/Resolved]

NARRATIVE: CASE EVENT DATE: 20170425
